FAERS Safety Report 4418047-8 (Version None)
Quarter: 2004Q3

REPORT INFORMATION
  Report Type: 
  Country: None (occurrence: None)
  Receive Date: 20040803
  Receipt Date: 20040728
  Transmission Date: 20050211
  Serious: Yes (Hospitalization, Disabling)
  Sender: FDA-Public Use
  Company Number: 002#4#2003-00484

PATIENT
  Age: 25 Year
  Sex: Female
  Weight: 69.4003 kg

DRUGS (4)
  1. PPA/CPM-75/8MG (OTC) (PHENYLPROPANOLAMINE HCL, CHLORPHEMIRAMINE MALEAT [Suspect]
     Indication: NASOPHARYNGITIS
     Dosage: ORAL
     Route: 048
     Dates: start: 19990919, end: 19990922
  2. ROBITUSSIN-DM [Concomitant]
  3. SUDAFED S.A. [Concomitant]
  4. COUGH SYRUP [Concomitant]

REACTIONS (11)
  - CEREBRAL ARTERY EMBOLISM [None]
  - CEREBROVASCULAR ACCIDENT [None]
  - CLUMSINESS [None]
  - DIABETES MELLITUS [None]
  - EMBOLIC STROKE [None]
  - HYPERTENSION [None]
  - MEMORY IMPAIRMENT [None]
  - MICROCYTIC ANAEMIA [None]
  - MIGRAINE [None]
  - THROMBOSIS [None]
  - VAGINAL HAEMORRHAGE [None]
